FAERS Safety Report 9067450 (Version 1)
Quarter: 2013Q1

REPORT INFORMATION
  Report Type: Spontaneous
  Country: US (occurrence: US)
  Receive Date: 20130129
  Receipt Date: 20130129
  Transmission Date: 20140127
  Serious: Yes (Death)
  Sender: FDA-Public Use
  Company Number: US-JNJFOC-20130113073

PATIENT
  Sex: 0

DRUGS (1)
  1. DOXORUBICIN HYDROCHLORIDE [Suspect]
     Indication: DIFFUSE LARGE B-CELL LYMPHOMA
     Route: 042

REACTIONS (1)
  - Death [Fatal]
